FAERS Safety Report 15653912 (Version 1)
Quarter: 2018Q4

REPORT INFORMATION
  Report Type: Spontaneous
  Country: GB (occurrence: GB)
  Receive Date: 20181125
  Receipt Date: 20181125
  Transmission Date: 20190205
  Serious: Yes (Hospitalization)
  Sender: FDA-Public Use
  Company Number: GB-PRINSTON PHARMACEUTICAL INC.-2018PRN01593

PATIENT
  Age: 93 Year
  Sex: Female

DRUGS (4)
  1. SODIUM DOCUSATE [Concomitant]
     Active Substance: DOCUSATE SODIUM
     Route: 065
  2. CALCIUM SUPPLEMENT [Concomitant]
     Active Substance: CALCIUM
     Route: 065
  3. DONEPEZIL. [Suspect]
     Active Substance: DONEPEZIL
     Dosage: 5 MG, 1X/DAY
     Route: 065
  4. DONEPEZIL. [Suspect]
     Active Substance: DONEPEZIL
     Dosage: 10 UNK
     Route: 065

REACTIONS (2)
  - Myoclonus [Recovered/Resolved]
  - Mobility decreased [Recovered/Resolved]
